FAERS Safety Report 13945098 (Version 1)
Quarter: 2017Q3

REPORT INFORMATION
  Report Type: Spontaneous
  Country: US (occurrence: US)
  Receive Date: 20170907
  Receipt Date: 20170907
  Transmission Date: 20171128
  Serious: No
  Sender: FDA-Public Use
  Company Number: US-ROCHE-1385336

PATIENT
  Sex: Male

DRUGS (4)
  1. PREDNISONE. [Concomitant]
     Active Substance: PREDNISONE
     Indication: B-CELL LYMPHOMA
  2. CYCLOPHOSPHAMID [Concomitant]
     Active Substance: CYCLOPHOSPHAMIDE
     Indication: B-CELL LYMPHOMA
  3. VINCRISTINE [Concomitant]
     Active Substance: VINCRISTINE
     Indication: B-CELL LYMPHOMA
  4. RITUXAN [Suspect]
     Active Substance: RITUXIMAB
     Indication: B-CELL LYMPHOMA
     Dosage: DISCONTINUED AFTER A YEAR
     Route: 065

REACTIONS (1)
  - Chills [Unknown]
